FAERS Safety Report 25845939 (Version 1)
Quarter: 2025Q3

REPORT INFORMATION
  Report Type: Spontaneous
  Country: US (occurrence: US)
  Receive Date: 20250925
  Receipt Date: 20250925
  Transmission Date: 20251020
  Serious: Yes (Death, Life-Threatening, Hospitalization)
  Sender: MICRO LABS
  Company Number: US-MLMSERVICE-20250908-PI639204-00217-1

PATIENT
  Age: 72 Year
  Sex: Female

DRUGS (3)
  1. METFORMIN [Suspect]
     Active Substance: METFORMIN HYDROCHLORIDE
     Indication: Type 2 diabetes mellitus
  2. OZEMPIC [Suspect]
     Active Substance: SEMAGLUTIDE
     Indication: Type 2 diabetes mellitus
  3. EMPAGLIFLOZIN [Suspect]
     Active Substance: EMPAGLIFLOZIN
     Indication: Type 2 diabetes mellitus

REACTIONS (9)
  - Metabolic acidosis [Fatal]
  - Multiple organ dysfunction syndrome [Fatal]
  - Respiratory disorder [Fatal]
  - Cardiac arrest [Recovered/Resolved]
  - Euglycaemic diabetic ketoacidosis [Not Recovered/Not Resolved]
  - Starvation ketoacidosis [Not Recovered/Not Resolved]
  - Acute kidney injury [Not Recovered/Not Resolved]
  - Lactic acidosis [Not Recovered/Not Resolved]
  - Drug interaction [Fatal]
